FAERS Safety Report 22589303 (Version 3)
Quarter: 2023Q2

REPORT INFORMATION
  Report Type: Spontaneous
  Country: US (occurrence: US)
  Receive Date: 20230612
  Receipt Date: 20230613
  Transmission Date: 20230721
  Serious: No
  Sender: FDA-Public Use
  Company Number: US-ViiV Healthcare Limited-96817

PATIENT

DRUGS (1)
  1. DOVATO [Suspect]
     Active Substance: DOLUTEGRAVIR SODIUM\LAMIVUDINE
     Indication: Product used for unknown indication
     Dosage: UNK

REACTIONS (2)
  - Oesophageal discomfort [Unknown]
  - Product use complaint [Unknown]
